FAERS Safety Report 16088806 (Version 1)
Quarter: 2019Q1

REPORT INFORMATION
  Report Type: Spontaneous
  Country: JP (occurrence: JP)
  Receive Date: 20190319
  Receipt Date: 20190319
  Transmission Date: 20190418
  Serious: Yes (Death, Life-Threatening, Hospitalization, Other)
  Sender: FDA-Public Use
  Company Number: JP-BAUSCH-BL-2019-008197

PATIENT
  Age: 66 Year
  Sex: Female

DRUGS (1)
  1. PREDNISOLONE. [Suspect]
     Active Substance: PREDNISOLONE
     Indication: AUTOIMMUNE HEPATITIS
     Route: 065

REACTIONS (8)
  - Blood alkaline phosphatase increased [Fatal]
  - Mucormycosis [Fatal]
  - Dyspnoea [Unknown]
  - Subcutaneous abscess [Fatal]
  - Gamma-glutamyltransferase increased [Fatal]
  - Candida infection [Fatal]
  - Disseminated intravascular coagulation [Unknown]
  - Abdominal distension [Unknown]
